FAERS Safety Report 15885664 (Version 1)
Quarter: 2019Q1

REPORT INFORMATION
  Report Type: Report from Study
  Country: US (occurrence: US)
  Receive Date: 20190129
  Receipt Date: 20190129
  Transmission Date: 20190417
  Serious: Yes (Death)
  Sender: FDA-Public Use
  Company Number: US-TAIHO ONCOLOGY  INC-EU-2019-00251

PATIENT
  Sex: Female
  Weight: 72.64 kg

DRUGS (7)
  1. NEUPOGEN [Concomitant]
     Active Substance: FILGRASTIM
     Dosage: NI
  2. ANORO ELLIPTA [Concomitant]
     Active Substance: UMECLIDINIUM BROMIDE\VILANTEROL TRIFENATATE
     Dosage: NI
  3. XARELTO [Concomitant]
     Active Substance: RIVAROXABAN
     Dosage: NI
  4. METOPROLOL. [Concomitant]
     Active Substance: METOPROLOL
     Dosage: NI
  5. PROCARDIA [Concomitant]
     Active Substance: NIFEDIPINE
     Dosage: NI
  6. LONSURF [Suspect]
     Active Substance: TIPIRACIL HYDROCHLORIDE\TRIFLURIDINE
     Indication: COLON CANCER
     Dosage: TWO 20MG TABLETS WITH ONE 15MG TABLET?LAST CYCLE UNKNOWN
     Route: 048
     Dates: start: 20180726
  7. VENTOLIN HFA [Concomitant]
     Active Substance: ALBUTEROL SULFATE
     Dosage: NI

REACTIONS (1)
  - Death [Fatal]
